FAERS Safety Report 7835447-4 (Version None)
Quarter: 2011Q4

REPORT INFORMATION
  Report Type: 
  Country: None (occurrence: None)
  Receive Date: 20111024
  Receipt Date: 20111020
  Transmission Date: 20120403
  Serious: Yes (Death)
  Sender: FDA-Public Use
  Company Number: AU-SANOFI-AVENTIS-2011SA066055

PATIENT
  Sex: Male
  Weight: 150 kg

DRUGS (12)
  1. APIDRA [Suspect]
     Route: 065
  2. FUROSEMIDE [Concomitant]
     Dosage: FREQUENCY: MDUTWC-FRUSEMIDE
  3. KARVEA [Concomitant]
  4. ASPIRIN [Concomitant]
  5. SIMVASTATIN [Concomitant]
     Dosage: FREQUENCY: N
  6. NITROLINGUAL [Concomitant]
  7. METFORMIN HCL [Concomitant]
  8. LANTUS [Concomitant]
     Dosage: FREQUENCY: N DOSE:40 UNIT(S)
  9. PANTOPRAZOLE [Concomitant]
     Dosage: TWC-PANTOPRAZOLE
  10. LIPIDIL [Concomitant]
  11. PLAVIX [Concomitant]
  12. ISOSORBIDE MONONITRATE [Concomitant]

REACTIONS (1)
  - DEATH [None]
